FAERS Safety Report 24057312 (Version 3)
Quarter: 2024Q3

REPORT INFORMATION
  Report Type: Report from Study
  Country: JP (occurrence: JP)
  Receive Date: 20240706
  Receipt Date: 20240724
  Transmission Date: 20241016
  Serious: Yes (Death, Other)
  Sender: TAKEDA
  Company Number: JP-JNJFOC-20240710475

PATIENT
  Age: 78 Year
  Sex: Female
  Weight: 47.5 kg

DRUGS (28)
  1. BORTEZOMIB [Suspect]
     Active Substance: BORTEZOMIB
     Indication: Primary amyloidosis
     Dosage: UNK UNK, QD
     Route: 065
     Dates: start: 20240418, end: 20240418
  2. BORTEZOMIB [Suspect]
     Active Substance: BORTEZOMIB
     Dosage: UNK UNK, QD
     Route: 065
     Dates: start: 20240425, end: 20240425
  3. BORTEZOMIB [Suspect]
     Active Substance: BORTEZOMIB
     Dosage: UNK UNK, QD
     Route: 065
     Dates: start: 20240501, end: 20240501
  4. BORTEZOMIB [Suspect]
     Active Substance: BORTEZOMIB
     Dosage: UNK UNK, QD
     Route: 065
     Dates: start: 20240508, end: 20240508
  5. BORTEZOMIB [Suspect]
     Active Substance: BORTEZOMIB
     Dosage: UNK UNK, QD
     Route: 065
     Dates: start: 20240605, end: 20240605
  6. BORTEZOMIB [Suspect]
     Active Substance: BORTEZOMIB
     Dosage: UNK UNK, QD
     Route: 065
     Dates: start: 20240612, end: 20240612
  7. BORTEZOMIB [Suspect]
     Active Substance: BORTEZOMIB
     Dosage: UNK UNK, QD
     Route: 065
     Dates: start: 20240619, end: 20240619
  8. BORTEZOMIB [Suspect]
     Active Substance: BORTEZOMIB
     Dosage: UNK UNK, QD
     Route: 065
     Dates: start: 20240626, end: 20240626
  9. DEXAMETHASONE [Suspect]
     Active Substance: DEXAMETHASONE
     Indication: Primary amyloidosis
     Dosage: 20 MILLIGRAM, QD
     Route: 065
     Dates: start: 20240418, end: 20240419
  10. DEXAMETHASONE [Suspect]
     Active Substance: DEXAMETHASONE
     Dosage: 20 MILLIGRAM, QD
     Route: 065
     Dates: start: 20240425, end: 20240425
  11. DEXAMETHASONE [Suspect]
     Active Substance: DEXAMETHASONE
     Dosage: 20 MILLIGRAM, QD
     Route: 065
     Dates: start: 20240501, end: 20240501
  12. DEXAMETHASONE [Suspect]
     Active Substance: DEXAMETHASONE
     Dosage: 20 MILLIGRAM, QD
     Route: 065
     Dates: start: 20240508, end: 20240508
  13. DEXAMETHASONE [Suspect]
     Active Substance: DEXAMETHASONE
     Dosage: 20 MILLIGRAM, QD
     Route: 065
     Dates: start: 20240605, end: 20240605
  14. DEXAMETHASONE [Suspect]
     Active Substance: DEXAMETHASONE
     Dosage: 20 MILLIGRAM, QD
     Route: 065
     Dates: start: 20240612, end: 20240612
  15. DEXAMETHASONE [Suspect]
     Active Substance: DEXAMETHASONE
     Dosage: 20 MILLIGRAM, QD
     Route: 065
     Dates: start: 20240619, end: 20240619
  16. DARATUMUMAB [Suspect]
     Active Substance: DARATUMUMAB
     Indication: Primary amyloidosis
     Dosage: 1800 MILLIGRAM, QD
     Route: 058
     Dates: start: 20240418, end: 20240418
  17. DARATUMUMAB [Suspect]
     Active Substance: DARATUMUMAB
     Dosage: 1800 MILLIGRAM, QD
     Route: 058
     Dates: start: 20240425, end: 20240425
  18. DARATUMUMAB [Suspect]
     Active Substance: DARATUMUMAB
     Dosage: 1800 MILLIGRAM, QD
     Route: 058
     Dates: start: 20240501, end: 20240501
  19. DARATUMUMAB [Suspect]
     Active Substance: DARATUMUMAB
     Dosage: 1800 MILLIGRAM, QD
     Route: 058
     Dates: start: 20240508, end: 20240508
  20. DARATUMUMAB [Suspect]
     Active Substance: DARATUMUMAB
     Dosage: 1800 MILLIGRAM, QD
     Route: 058
     Dates: start: 20240529, end: 20240529
  21. DARATUMUMAB [Suspect]
     Active Substance: DARATUMUMAB
     Dosage: 1800 MILLIGRAM, QD
     Route: 058
     Dates: start: 20240605, end: 20240605
  22. DARATUMUMAB [Suspect]
     Active Substance: DARATUMUMAB
     Dosage: 1800 MILLIGRAM, QD
     Route: 058
     Dates: start: 20240612, end: 20240612
  23. DARATUMUMAB [Suspect]
     Active Substance: DARATUMUMAB
     Dosage: 1800 MILLIGRAM, QD
     Route: 058
     Dates: start: 20240619, end: 20240619
  24. DARATUMUMAB [Suspect]
     Active Substance: DARATUMUMAB
     Dosage: 1800 MILLIGRAM, QD
     Route: 058
     Dates: start: 20240626, end: 20240626
  25. CYCLOPHOSPHAMIDE [Concomitant]
     Active Substance: CYCLOPHOSPHAMIDE
     Indication: Primary amyloidosis
     Dosage: UNK, QD
     Route: 065
     Dates: start: 20240418, end: 20240418
  26. CYCLOPHOSPHAMIDE [Concomitant]
     Active Substance: CYCLOPHOSPHAMIDE
     Dosage: UNK, QD
     Route: 065
     Dates: start: 20240425, end: 20240425
  27. CYCLOPHOSPHAMIDE [Concomitant]
     Active Substance: CYCLOPHOSPHAMIDE
     Dosage: UNK, QD
     Route: 065
     Dates: start: 20240501, end: 20240501
  28. VALGANCICLOVIR HYDROCHLORIDE [Concomitant]
     Active Substance: VALGANCICLOVIR HYDROCHLORIDE
     Indication: Cytomegalovirus infection
     Dosage: UNK
     Route: 065
     Dates: start: 20240508, end: 20240604

REACTIONS (3)
  - Death [Fatal]
  - Cytomegalovirus infection [Recovered/Resolved]
  - Off label use [Unknown]

NARRATIVE: CASE EVENT DATE: 20240418
